FAERS Safety Report 20217196 (Version 1)
Quarter: 2021Q4

REPORT INFORMATION
  Report Type: Spontaneous
  Country: DE (occurrence: DE)
  Receive Date: 20211222
  Receipt Date: 20211222
  Transmission Date: 20220303
  Serious: Yes (Hospitalization)
  Sender: FDA-Public Use
  Company Number: DE-ADRED-07188-01

PATIENT
  Age: 55 Year
  Sex: Female

DRUGS (10)
  1. CARBOPLATIN [Suspect]
     Active Substance: CARBOPLATIN
     Indication: Product used for unknown indication
     Dosage: 660 MG ONCE IN THIS CYCLE, SOLUTION FOR INJECTION/INFUSION
     Route: 042
  2. ETOPOSIDE [Suspect]
     Active Substance: ETOPOSIDE
     Indication: Product used for unknown indication
     Dosage: 210 MG / WEEK, DAY 1, 2 AND 3, SOLUTION FOR INJECTION/INFUSION
     Route: 042
  3. ESTRADIOL VALERATE/DIENOGEST [Concomitant]
     Indication: Product used for unknown indication
     Dosage: 1-0-0-0, TABLET?ARIORA 1 MG/2 MG TABLET
     Route: 048
  4. LEVOTHYROXINE SODIUM [Concomitant]
     Active Substance: LEVOTHYROXINE SODIUM
     Indication: Product used for unknown indication
     Dosage: 100 UG, 1.5-0-0-0, TABLET?L-THYROXIN 100-1A PHARMA
     Route: 048
  5. GRANISETRON HYDROCHLORIDE [Concomitant]
     Active Substance: GRANISETRON HYDROCHLORIDE
     Indication: Product used for unknown indication
     Dosage: 2 MG, ONE TABLET BEFORE AND AFTER CHEMOTHERAPY ON DAY 1 AND DAY 2 TO 4. ONLY BEFORE CHEMOTHERAPY. TA
     Route: 048
  6. DEXAMETHASONE [Concomitant]
     Active Substance: DEXAMETHASONE
     Indication: Product used for unknown indication
     Dosage: 8 MG, 8 MG, ONE TABLET, TABLET?DEXAMETHASON 8MG JENAPHARM
     Route: 048
  7. PANTOPRAZOLE SODIUM [Concomitant]
     Active Substance: PANTOPRAZOLE SODIUM
     Indication: Product used for unknown indication
     Dosage: 40 MG, 1-0-0-0, TABLET?PANTOPRAZOL ARISTO 40MG
     Route: 048
  8. SERTRALINE HYDROCHLORIDE [Concomitant]
     Active Substance: SERTRALINE HYDROCHLORIDE
     Indication: Product used for unknown indication
     Dosage: 50 MG, 2-0-0-0, TABLET?SERTRALIN-1A PHARMA 50MG
     Route: 048
  9. FLUPENTIXOL DECANOATE [Concomitant]
     Active Substance: FLUPENTIXOL DECANOATE
     Indication: Product used for unknown indication
     Dosage: 5 MG, 0-0-1-0, TABLET?FLUANXOL 5MG
     Route: 048
  10. APREPITANT [Concomitant]
     Active Substance: APREPITANT
     Indication: Product used for unknown indication
     Dosage: EMEND 150MG?150 MG, ONLY AT DAY ONE BEFORE CHEMOTHERAPY, SOLUTION FOR INJECTION/INFUSION
     Route: 042

REACTIONS (5)
  - Cough [Recovering/Resolving]
  - Dysphagia [Recovering/Resolving]
  - Productive cough [Recovering/Resolving]
  - Dyspnoea [Recovering/Resolving]
  - Mucosal inflammation [Recovering/Resolving]
